FAERS Safety Report 7596159-8 (Version None)
Quarter: 2011Q3

REPORT INFORMATION
  Report Type: 
  Country: None (occurrence: None)
  Receive Date: 20110707
  Receipt Date: 20110622
  Transmission Date: 20111222
  Serious: No
  Sender: FDA-Public Use
  Company Number: US-B.I. PHARMACEUTICALS,INC./RIDGEFIELD-2011-BP-16064BP

PATIENT
  Age: 60 Year
  Sex: Female

DRUGS (5)
  1. TOPROL-XL [Concomitant]
     Indication: HYPERTENSION
     Dates: start: 20050101
  2. ALPRAZOLAM [Concomitant]
     Indication: ANXIETY
     Dates: start: 20070101
  3. CELEXA [Concomitant]
     Indication: ANTIDEPRESSANT THERAPY
     Dates: start: 20070101
  4. ASPIRIN [Concomitant]
     Indication: ATRIAL FIBRILLATION
     Dosage: 81 MG
     Route: 048
     Dates: start: 20110201
  5. PRADAXA [Suspect]
     Indication: ATRIAL FIBRILLATION
     Dosage: 150 MG
     Route: 048
     Dates: start: 20110201

REACTIONS (1)
  - ALOPECIA [None]
